FAERS Safety Report 6342225-4 (Version None)
Quarter: 2009Q3

REPORT INFORMATION
  Report Type: 
  Country: None (occurrence: None)
  Receive Date: 20090903
  Receipt Date: 20090903
  Transmission Date: 20100115
  Serious: Yes (Other)
  Sender: FDA-Public Use
  Company Number: None

PATIENT
  Sex: Male
  Weight: 105 kg

DRUGS (1)
  1. OXCARBAZEPINE [Suspect]
     Indication: EPILEPSY
     Dosage: 600 MG TABS 1 QAM 2 QHS P.O.
     Route: 048
     Dates: start: 20090801

REACTIONS (5)
  - CONVULSION [None]
  - DIPLOPIA [None]
  - EYE PAIN [None]
  - HEADACHE [None]
  - PRODUCT SUBSTITUTION ISSUE [None]
